FAERS Safety Report 9741535 (Version 1)
Quarter: 2013Q4

REPORT INFORMATION
  Report Type: Report from Study
  Country: US (occurrence: US)
  Receive Date: 20131210
  Receipt Date: 20131210
  Transmission Date: 20140711
  Serious: Yes (Hospitalization)
  Sender: FDA-Public Use
  Company Number: US-ROCHE-1316037

PATIENT
  Age: 78 Year
  Sex: Female

DRUGS (7)
  1. LUCENTIS [Suspect]
     Indication: PRODUCT USED FOR UNKNOWN INDICATION
     Route: 065
  2. GLIPIZIDE [Concomitant]
     Indication: DIABETES MELLITUS
     Route: 048
  3. LISINOPRIL [Concomitant]
     Indication: HYPERTENSION
     Route: 048
  4. DILTIAZEM [Concomitant]
     Indication: HYPERTENSION
     Route: 048
  5. BABY ASPIRIN [Concomitant]
  6. VITAMIN D3 [Concomitant]
  7. XANAX [Concomitant]
     Indication: NERVOUSNESS
     Route: 048

REACTIONS (4)
  - Fall [Recovered/Resolved]
  - Visual impairment [Not Recovered/Not Resolved]
  - Vision blurred [Not Recovered/Not Resolved]
  - Blood glucose increased [Recovering/Resolving]
